FAERS Safety Report 4697012-X (Version None)
Quarter: 2005Q2

REPORT INFORMATION
  Report Type: 
  Country: None (occurrence: None)
  Receive Date: 20050127
  Receipt Date: 20050127
  Transmission Date: 20051028
  Serious: Yes (Other)
  Sender: FDA-Public Use
  Company Number: None

PATIENT
  Sex: Female

DRUGS (2)
  1. CLOZARIL [Suspect]
     Indication: BIPOLAR DISORDER
  2. CLOZARIL [Suspect]
     Indication: SCHIZOAFFECTIVE DISORDER

REACTIONS (5)
  - IRRITABILITY [None]
  - MANIA [None]
  - SPEECH DISORDER [None]
  - TANGENTIALITY [None]
  - THERAPEUTIC RESPONSE UNEXPECTED WITH DRUG SUBSTITUTION [None]
